FAERS Safety Report 7596403-7 (Version None)
Quarter: 2011Q3

REPORT INFORMATION
  Report Type: 
  Country: None (occurrence: None)
  Receive Date: 20110707
  Receipt Date: 20110627
  Transmission Date: 20111222
  Serious: Yes (Hospitalization, Other)
  Sender: FDA-Public Use
  Company Number: US-AMGEN-USASP2011032916

PATIENT
  Age: 62 Year
  Sex: Female

DRUGS (1)
  1. ENBREL [Suspect]
     Indication: RHEUMATOID ARTHRITIS
     Dates: start: 20090628, end: 20110120

REACTIONS (23)
  - MACULAR DEGENERATION [None]
  - GINGIVITIS [None]
  - MENISCUS LESION [None]
  - EYE PAIN [None]
  - RHEUMATOID ARTHRITIS [None]
  - CHEST PAIN [None]
  - SILENT MYOCARDIAL INFARCTION [None]
  - CHEST DISCOMFORT [None]
  - ARTERIOSPASM CORONARY [None]
  - CERVICAL SPINAL STENOSIS [None]
  - MOBILITY DECREASED [None]
  - OPERATIVE HAEMORRHAGE [None]
  - MYOCARDIAL INFARCTION [None]
  - PAIN IN EXTREMITY [None]
  - FALL [None]
  - OEDEMA PERIPHERAL [None]
  - TOOTH EXTRACTION [None]
  - HAEMORRHAGE [None]
  - VASCULAR RUPTURE [None]
  - HEADACHE [None]
  - PAIN IN JAW [None]
  - ARTERIOSCLEROSIS CORONARY ARTERY [None]
  - DENTAL CARIES [None]
